FAERS Safety Report 5284153-1 (Version None)
Quarter: 2007Q1

REPORT INFORMATION
  Report Type: 
  Country: None (occurrence: None)
  Receive Date: 20061220
  Receipt Date: 20061030
  Transmission Date: 20070707
  Serious: No
  Sender: FDA-Public Use
  Company Number: 06P-163-0348632-00

PATIENT
  Age: 53 Year
  Sex: Female
  Weight: 59.8748 kg

DRUGS (5)
  1. ZEMPLAR [Suspect]
     Indication: BLOOD CALCIUM DECREASED
     Dosage: PER ORAL
     Route: 048
     Dates: start: 20060801, end: 20061001
  2. FUROSEMIDE [Concomitant]
  3. CONDIT [Concomitant]
  4. CLONIDINE [Concomitant]
  5. CAPTOPRIL [Concomitant]

REACTIONS (3)
  - DYSGEUSIA [None]
  - HYPERCALCAEMIA [None]
  - RENAL IMPAIRMENT [None]
